FAERS Safety Report 25959210 (Version 2)
Quarter: 2025Q4

REPORT INFORMATION
  Report Type: Spontaneous
  Country: US (occurrence: US)
  Receive Date: 20251025
  Receipt Date: 20251126
  Transmission Date: 20260118
  Serious: Yes (Other)
  Sender: TEVA
  Company Number: US-TEVA-VS-3383023

PATIENT
  Age: 49 Year
  Sex: Female

DRUGS (2)
  1. ATENOLOL [Suspect]
     Active Substance: ATENOLOL
     Indication: Product used for unknown indication
     Dosage: TIME INTERVAL: 0.33333333 DAYS: CUTS THE TABLETS INTO HALVES OR QUARTERS
     Route: 048
     Dates: start: 2021
  2. CLARITIN [Concomitant]
     Active Substance: LORATADINE
     Indication: Product used for unknown indication
     Dosage: GD
     Route: 065

REACTIONS (7)
  - Neuropathy peripheral [Unknown]
  - Paraesthesia [Recovered/Resolved]
  - Tremor [Recovered/Resolved]
  - Illness [Unknown]
  - Sleep disorder [Unknown]
  - Feeling cold [Recovered/Resolved]
  - Wrong technique in product usage process [Unknown]

NARRATIVE: CASE EVENT DATE: 20250930
